FAERS Safety Report 19725953 (Version 1)
Quarter: 2021Q3

REPORT INFORMATION
  Report Type: Spontaneous
  Country: US (occurrence: US)
  Receive Date: 20210819
  Receipt Date: 20210819
  Transmission Date: 20211014
  Serious: No
  Sender: FDA-Public Use
  Company Number: US-MANNKIND CORPORATION-2020MK000089

PATIENT
  Sex: Female

DRUGS (2)
  1. AFREZZA [Suspect]
     Active Substance: INSULIN HUMAN
     Indication: TYPE 1 DIABETES MELLITUS
     Dates: start: 2020
  2. AFREZZA [Suspect]
     Active Substance: INSULIN HUMAN
     Dates: start: 2020

REACTIONS (2)
  - Productive cough [Unknown]
  - Product administration error [Unknown]

NARRATIVE: CASE EVENT DATE: 2020
